FAERS Safety Report 8196753-X (Version None)
Quarter: 2012Q1

REPORT INFORMATION
  Report Type: 
  Country: None (occurrence: None)
  Receive Date: 20120309
  Receipt Date: 20120305
  Transmission Date: 20120608
  Serious: Yes (Other)
  Sender: FDA-Public Use
  Company Number: US-BAYER-2012-021962

PATIENT
  Sex: Female

DRUGS (5)
  1. BEYAZ [Suspect]
  2. DROSPIRENONE AND ETHINYL ESTRADIOL [Suspect]
  3. DROSPIRENONE AND ETHINYL ESTRADIOL [Suspect]
  4. YASMIN [Suspect]
     Dosage: UNK
  5. YAZ [Suspect]

REACTIONS (2)
  - CHOLECYSTITIS CHRONIC [None]
  - PAIN [None]
